FAERS Safety Report 7644847-7 (Version None)
Quarter: 2011Q3

REPORT INFORMATION
  Report Type: 
  Country: None (occurrence: None)
  Receive Date: 20110729
  Receipt Date: 20110720
  Transmission Date: 20111222
  Serious: Yes (Hospitalization)
  Sender: FDA-Public Use
  Company Number: BR-ABBOTT-11P-020-0842034-00

PATIENT
  Sex: Female

DRUGS (2)
  1. HUMIRA [Suspect]
     Dosage: INDUCTION DOSE
     Dates: start: 20110718
  2. HUMIRA [Suspect]
     Indication: CROHN'S DISEASE
     Dosage: INDUCTION DOSE
     Dates: start: 20110101

REACTIONS (4)
  - INJECTION SITE REACTION [None]
  - FACE OEDEMA [None]
  - ERYTHEMA [None]
  - INJECTION SITE ERYTHEMA [None]
